FAERS Safety Report 16435907 (Version 3)
Quarter: 2019Q3

REPORT INFORMATION
  Report Type: Report from Study
  Country: US (occurrence: US)
  Receive Date: 20190614
  Receipt Date: 20190703
  Transmission Date: 20191004
  Serious: Yes (Hospitalization)
  Sender: FDA-Public Use
  Company Number: PHEH2019US024793

PATIENT
  Sex: Male
  Weight: 79.83 kg

DRUGS (2)
  1. ADCIRCA [Concomitant]
     Active Substance: TADALAFIL
     Indication: PULMONARY ARTERIAL HYPERTENSION
     Route: 065
  2. TREPROSTINIL. [Suspect]
     Active Substance: TREPROSTINIL
     Indication: PULMONARY ARTERIAL HYPERTENSION
     Dosage: 95 NG/KG/MIN, CONTINUOUS
     Route: 042
     Dates: start: 20190521

REACTIONS (4)
  - Blood pressure abnormal [Unknown]
  - Pulmonary hypertension [Unknown]
  - Heart rate abnormal [Unknown]
  - Oxygen saturation abnormal [Unknown]
